FAERS Safety Report 6341682-7 (Version None)
Quarter: 2009Q3

REPORT INFORMATION
  Report Type: 
  Country: None (occurrence: None)
  Receive Date: 20090901
  Receipt Date: 20090901
  Transmission Date: 20100115
  Serious: Yes (Life-Threatening)
  Sender: FDA-Public Use
  Company Number: None

PATIENT
  Age: 9 Year
  Sex: Female
  Weight: 37 kg

DRUGS (1)
  1. TOPIRAMATE [Suspect]
     Indication: EPILEPSY
     Dosage: 50 MG - 3W AM AND 4W PM
     Dates: start: 20090527

REACTIONS (2)
  - PRODUCT SUBSTITUTION ISSUE [None]
  - STATUS EPILEPTICUS [None]
